FAERS Safety Report 23352724 (Version 2)
Quarter: 2024Q1

REPORT INFORMATION
  Report Type: Report from Study
  Country: BR (occurrence: BR)
  Receive Date: 20231230
  Receipt Date: 20240103
  Transmission Date: 20240410
  Serious: Yes (Other)
  Sender: FDA-Public Use
  Company Number: BR-BAYER-2023A163324

PATIENT
  Age: 67 Year
  Sex: Female

DRUGS (12)
  1. VENTAVIS [Suspect]
     Active Substance: ILOPROST
     Indication: Pulmonary arterial hypertension
     Dosage: 1 ML. PATIENT PERFORMS INHALATION PROCEDURE 4 TIMES A DAY
     Route: 055
     Dates: start: 20231111
  2. VENTAVIS [Suspect]
     Active Substance: ILOPROST
     Dosage: 5 NEBULISATIONS A DAY
     Route: 055
  3. AMBRISENTAN [Concomitant]
     Active Substance: AMBRISENTAN
     Indication: Pulmonary hypertension
     Dosage: TAKES 1 TABLET A DAY OF 10 MG
     Dates: start: 202307
  4. SILDENAFIL [Concomitant]
     Active Substance: SILDENAFIL
     Indication: Pulmonary hypertension
     Dosage: UNK, Q8HR
     Dates: start: 202207
  5. CARDIZEM [Concomitant]
     Active Substance: DILTIAZEM HYDROCHLORIDE
     Indication: Heart rate decreased
     Dosage: TAKE 1 TABLET OF 60 MG EVERY 12 HOURS
     Dates: start: 202207
  6. DIGOXIN [Concomitant]
     Active Substance: DIGOXIN
     Indication: Pulmonary hypertension
     Dosage: AKE HALF A TABLET OF 0.25MG
     Dates: start: 202204
  7. FUROSEMIDE [Concomitant]
     Active Substance: FUROSEMIDE
     Indication: Pulmonary hypertension
     Dosage: TAKES HALF A TABLET
     Dates: start: 202204
  8. SPIRONOLACTONE [Concomitant]
     Active Substance: SPIRONOLACTONE
     Indication: Pulmonary hypertension
     Dosage: TAKES 1 TABLET A DAY
     Dates: start: 202204
  9. RIVAROXABAN [Concomitant]
     Active Substance: RIVAROXABAN
     Dosage: TAKES 1 TABLET OF 20 MG WITH LUNCH
     Dates: start: 202204
  10. UMECLIDINIUM BROMIDE\VILANTEROL TRIFENATATE [Concomitant]
     Active Substance: UMECLIDINIUM BROMIDE\VILANTEROL TRIFENATATE
     Indication: Pulmonary hypertension
     Dosage: 62.5/25 MICROGRAMS, ONCE A DAY. HAS BEEN USING IT FOR OVER 2 YEARS. PREVIOUSLY USED SERETIDE FOR OVE
  11. METFORMIN HYDROCHLORIDE [Concomitant]
     Active Substance: METFORMIN HYDROCHLORIDE
     Indication: Glucose tolerance impaired
     Dosage: TAKES 2 TABLETS A DAY OF 500MG
     Dates: start: 201311
  12. PURAN [Concomitant]
     Active Substance: LEVOTHYROXINE SODIUM
     Indication: Thyroid disorder
     Dosage: HAS BEEN TAKING 1 TABLET A DAY FOR ABOUT 3 TO 4 YEARS.

REACTIONS (3)
  - Inappropriate schedule of product administration [Unknown]
  - Incorrect dose administered [Unknown]
  - Wrong technique in product usage process [Unknown]
